FAERS Safety Report 8951586 (Version 1)
Quarter: 2012Q4

REPORT INFORMATION
  Report Type: Report from Study
  Country: CA (occurrence: CA)
  Receive Date: 20121204
  Receipt Date: 20121204
  Transmission Date: 20130627
  Serious: Yes (Other)
  Sender: FDA-Public Use
  Company Number: CA-ROCHE-1162534

PATIENT
  Sex: Male

DRUGS (1)
  1. OMALIZUMAB [Suspect]
     Indication: PRODUCT USED FOR UNKNOWN INDICATION
     Route: 058
     Dates: start: 20070322

REACTIONS (7)
  - Hypersensitivity [Unknown]
  - Seasonal allergy [Unknown]
  - Dyspnoea [Recovered/Resolved]
  - Malaise [Unknown]
  - Secretion discharge [Unknown]
  - Headache [Unknown]
  - Nasal congestion [Unknown]
